FAERS Safety Report 7156140-X (Version None)
Quarter: 2010Q4

REPORT INFORMATION
  Report Type: 
  Country: None (occurrence: None)
  Receive Date: 20101123
  Receipt Date: 20100930
  Transmission Date: 20110411
  Serious: Yes (Other)
  Sender: FDA-Public Use
  Company Number: 018533

PATIENT
  Sex: Male
  Weight: 68.4932 kg

DRUGS (7)
  1. CIMZIA [Suspect]
     Indication: COLITIS ULCERATIVE
     Dosage: 400 MG 1X/4 WEEK SUBCUTANEOUS
     Route: 058
     Dates: start: 20090115
  2. MEASLAMINE [Concomitant]
  3. CELEBREX [Concomitant]
  4. FLONASE [Concomitant]
  5. M.V.I. [Concomitant]
  6. LOVAZA [Concomitant]
  7. PROTEIN SUPPLEMENTS [Concomitant]

REACTIONS (1)
  - LUPUS-LIKE SYNDROME [None]
